FAERS Safety Report 22041139 (Version 1)
Quarter: 2023Q1

REPORT INFORMATION
  Report Type: Spontaneous
  Country: JP (occurrence: None)
  Receive Date: 20230227
  Receipt Date: 20230227
  Transmission Date: 20230418
  Serious: Yes (Hospitalization)
  Sender: FDA-Public Use
  Company Number: 2023A047748

PATIENT
  Age: 58 Year
  Sex: Male
  Weight: 44 kg

DRUGS (16)
  1. ROSUVASTATIN CALCIUM [Suspect]
     Active Substance: ROSUVASTATIN CALCIUM
     Dosage: DOSE UNKNOWN
     Route: 048
     Dates: start: 20221228
  2. NEXIUM [Suspect]
     Active Substance: ESOMEPRAZOLE MAGNESIUM
     Dosage: DOSE UNKNOWN
     Route: 048
     Dates: start: 20221228
  3. SULFAMETHOXAZOLE\TRIMETHOPRIM [Suspect]
     Active Substance: SULFAMETHOXAZOLE\TRIMETHOPRIM
     Indication: Pulmonary toxicity
     Route: 048
     Dates: start: 20230123, end: 20230128
  4. SULFAMETHOXAZOLE\TRIMETHOPRIM [Suspect]
     Active Substance: SULFAMETHOXAZOLE\TRIMETHOPRIM
     Indication: Pulmonary toxicity
     Route: 048
     Dates: start: 20230123
  5. ACETAMINOPHEN [Concomitant]
     Active Substance: ACETAMINOPHEN
     Dosage: DOSE UNKNOWN
     Route: 048
     Dates: start: 20221229
  6. DIETARY SUPPLEMENT\PROBIOTICS [Concomitant]
     Active Substance: DIETARY SUPPLEMENT\PROBIOTICS
     Dosage: DOSE UNKNOWN
     Route: 048
     Dates: start: 20221228
  7. MAGNESIUM OXIDE [Concomitant]
     Active Substance: MAGNESIUM OXIDE
     Dosage: DOSE UNKNOWN
     Route: 048
     Dates: start: 20221230
  8. BISOPROLOL FUMARATE [Concomitant]
     Active Substance: BISOPROLOL FUMARATE
     Dosage: DOSE UNKNOWN
     Route: 048
     Dates: start: 20221228
  9. SYMPROIC [Concomitant]
     Active Substance: NALDEMEDINE
     Dosage: DOSE UNKNOWN
     Route: 048
     Dates: start: 20220103
  10. MIROGABALIN BESYLATE [Concomitant]
     Active Substance: MIROGABALIN BESYLATE
     Dosage: DOSE UNKNOWN
     Route: 048
     Dates: start: 20221228, end: 20230131
  11. ZICTHORU [Concomitant]
     Dosage: DOSE UNKNOWN
     Route: 062
     Dates: start: 20230114
  12. SULFAMETHOXAZOLE\TRIMETHOPRIM [Concomitant]
     Active Substance: SULFAMETHOXAZOLE\TRIMETHOPRIM
     Dosage: DOSE UNKNOWN
     Route: 042
     Dates: start: 20230119, end: 20230123
  13. CEFEPIME [Concomitant]
     Active Substance: CEFEPIME HYDROCHLORIDE
     Dosage: DOSE UNKNOWN
     Route: 042
     Dates: start: 20230116, end: 20230124
  14. HEPARIN CALCIUM [Concomitant]
     Active Substance: HEPARIN CALCIUM
     Dosage: DOSE UNKNOWN
     Route: 058
     Dates: start: 20230117
  15. OXYCODONE [Concomitant]
     Active Substance: OXYCODONE
     Dosage: DOSE UNKNOWN
     Route: 058
     Dates: start: 20230105, end: 20230205
  16. PREDONINE [Concomitant]
     Active Substance: PREDNISOLONE
     Dosage: DOSE UNKNOWN
     Route: 042
     Dates: start: 20230120, end: 20230123

REACTIONS (1)
  - Hyponatraemia [Recovered/Resolved]

NARRATIVE: CASE EVENT DATE: 20230127
